FAERS Safety Report 7267432-8 (Version None)
Quarter: 2011Q1

REPORT INFORMATION
  Report Type: 
  Country: None (occurrence: None)
  Receive Date: 20110121
  Receipt Date: 20110110
  Transmission Date: 20110831
  Serious: Yes (Hospitalization)
  Sender: FDA-Public Use
  Company Number: 024323

PATIENT
  Sex: Male
  Weight: 49.3 kg

DRUGS (5)
  1. PENTASA [Concomitant]
  2. CARAFATE [Concomitant]
  3. ROWASA [Concomitant]
  4. CIMZIA [Suspect]
     Indication: CROHN'S DISEASE
     Dosage: SUBCUTANEOUS
     Route: 058
     Dates: start: 20101018
  5. PRILOSEC [Concomitant]

REACTIONS (6)
  - RASH [None]
  - VIRAL INFECTION [None]
  - HENOCH-SCHONLEIN PURPURA [None]
  - CROHN'S DISEASE [None]
  - DRUG DOSE OMISSION [None]
  - OFF LABEL USE [None]
